FAERS Safety Report 20714395 (Version 2)
Quarter: 2022Q2

REPORT INFORMATION
  Report Type: Spontaneous
  Country: PL (occurrence: PL)
  Receive Date: 20220415
  Receipt Date: 20220502
  Transmission Date: 20220721
  Serious: Yes (Other)
  Sender: FDA-Public Use
  Company Number: PL-Merck Healthcare KGaA-9312062

PATIENT
  Sex: Male

DRUGS (7)
  1. ERBITUX [Suspect]
     Active Substance: CETUXIMAB
     Indication: Oropharyngeal squamous cell carcinoma
     Dosage: 400 MG/M2, UNKNOWN
     Route: 065
     Dates: start: 20210310, end: 202103
  2. ERBITUX [Suspect]
     Active Substance: CETUXIMAB
     Dosage: 250 MG/M2, UNKNOWN (TOTAL ADMINISTERED 6 CYCLES)
     Route: 065
     Dates: start: 202103, end: 20210716
  3. ERBITUX [Suspect]
     Active Substance: CETUXIMAB
     Dosage: 250 MG/M2, UNKNOWN (26 APPLICATIONS AS MONOTHERAPY )
     Route: 065
     Dates: start: 202107, end: 20210921
  4. FLUOROURACIL [Concomitant]
     Active Substance: FLUOROURACIL
     Indication: Oropharyngeal squamous cell carcinoma
     Dosage: UNK UNK, UNKNOWN
     Dates: end: 202011
  5. FLUOROURACIL [Concomitant]
     Active Substance: FLUOROURACIL
     Dosage: UNK UNK, UNKNOWN
     Dates: start: 20210310, end: 20210716
  6. CISPLATIN [Concomitant]
     Active Substance: CISPLATIN
     Indication: Oropharyngeal squamous cell carcinoma
     Dosage: UNK UNK, UNKNOWN
     Dates: start: 202010, end: 202011
  7. CISPLATIN [Concomitant]
     Active Substance: CISPLATIN
     Dosage: UNK UNK, UNKNOWN
     Dates: start: 20210310, end: 20210716

REACTIONS (3)
  - Headache [Unknown]
  - Malignant neoplasm progression [Unknown]
  - Visual impairment [Unknown]

NARRATIVE: CASE EVENT DATE: 20210924
